FAERS Safety Report 23218935 (Version 2)
Quarter: 2023Q4

REPORT INFORMATION
  Report Type: Spontaneous
  Country: FR (occurrence: FR)
  Receive Date: 20231122
  Receipt Date: 20231124
  Transmission Date: 20240109
  Serious: Yes (Death, Other)
  Sender: FDA-Public Use
  Company Number: FR-AFSSAPS-MP2023001336

PATIENT
  Age: 32 Year
  Sex: Female
  Weight: 54 kg

DRUGS (4)
  1. QUETIAPINE [Suspect]
     Active Substance: QUETIAPINE
     Indication: Schizoaffective disorder
     Dosage: 800 MILLIGRAM, DAILY
     Route: 048
     Dates: start: 20220930, end: 20230511
  2. LAMOTRIGINE [Suspect]
     Active Substance: LAMOTRIGINE
     Indication: Schizoaffective disorder
     Dosage: 100 MILLIGRAM
     Route: 048
     Dates: start: 20221020, end: 20230511
  3. HALOPERIDOL [Suspect]
     Active Substance: HALOPERIDOL
     Indication: Schizoaffective disorder
     Dosage: 50 MILLIGRAM
     Route: 030
     Dates: start: 201803, end: 20230414
  4. TROPATEPINE [Concomitant]
     Active Substance: TROPATEPINE
     Indication: Schizoaffective disorder
     Dosage: 10 MILLIGRAM
     Route: 048
     Dates: end: 20230511

REACTIONS (1)
  - Sudden death [Fatal]

NARRATIVE: CASE EVENT DATE: 20230511
